FAERS Safety Report 8074714-9 (Version None)
Quarter: 2012Q1

REPORT INFORMATION
  Report Type: 
  Country: None (occurrence: None)
  Receive Date: 20120126
  Receipt Date: 20120120
  Transmission Date: 20120608
  Serious: Yes (Hospitalization)
  Sender: FDA-Public Use
  Company Number: GB-ROCHE-1032322

PATIENT
  Sex: Female
  Weight: 47 kg

DRUGS (3)
  1. MABTHERA [Suspect]
     Indication: RHEUMATOID ARTHRITIS
     Dosage: LAST DOSE PRIOR TO SAE ON 23 JANUARY 2011, ROUTE, FORM AND FREQUENCY: NOT REPORTED
     Dates: start: 20110109
  2. AZULFIDINE [Concomitant]
  3. METHOTREXATE [Concomitant]

REACTIONS (3)
  - DYSPNOEA [None]
  - PULMONARY OEDEMA [None]
  - INFECTION [None]
